FAERS Safety Report 22311781 (Version 3)
Quarter: 2023Q2

REPORT INFORMATION
  Report Type: Report from Study
  Country: KR (occurrence: KR)
  Receive Date: 20230512
  Receipt Date: 20230525
  Transmission Date: 20230721
  Serious: Yes (Hospitalization)
  Sender: FDA-Public Use
  Company Number: KR-BEIGENE-BGN-2023-003817

PATIENT
  Age: 59 Year
  Sex: Male

DRUGS (2)
  1. TISLELIZUMAB [Suspect]
     Active Substance: TISLELIZUMAB
     Indication: Diffuse large B-cell lymphoma
     Dosage: 200 MG
     Route: 042
     Dates: start: 20230417
  2. PEMETREXED [Suspect]
     Active Substance: PEMETREXED
     Indication: Diffuse large B-cell lymphoma
     Dosage: 905 MG
     Route: 042
     Dates: start: 20230417

REACTIONS (1)
  - Pneumocystis jirovecii pneumonia [Not Recovered/Not Resolved]

NARRATIVE: CASE EVENT DATE: 20230429
